FAERS Safety Report 8611383-0 (Version None)
Quarter: 2012Q3

REPORT INFORMATION
  Report Type: 
  Country: None (occurrence: None)
  Receive Date: 20120822
  Receipt Date: 20120820
  Transmission Date: 20120928
  Serious: Yes (Other)
  Sender: FDA-Public Use
  Company Number: US-PFIZER INC-2012188198

PATIENT
  Age: 34 Year
  Sex: Male
  Weight: 95 kg

DRUGS (2)
  1. CHANTIX [Suspect]
     Indication: SMOKING CESSATION THERAPY
     Dosage: 0.5 MG, DAILY
     Dates: start: 20120801, end: 20120802
  2. BENADRYL [Concomitant]
     Indication: DRUG HYPERSENSITIVITY
     Dosage: 25 MG, AS NEEDED

REACTIONS (10)
  - CHEST PAIN [None]
  - PALPITATIONS [None]
  - PANIC REACTION [None]
  - ACTIVITIES OF DAILY LIVING IMPAIRED [None]
  - TREMOR [None]
  - NERVOUSNESS [None]
  - BLOOD PRESSURE INCREASED [None]
  - MUSCLE TWITCHING [None]
  - FEELING JITTERY [None]
  - CARDIAC DISORDER [None]
